FAERS Safety Report 8854482 (Version 2)
Quarter: 2012Q4

REPORT INFORMATION
  Report Type: 
  Country: US (occurrence: US)
  Receive Date: 20121023
  Receipt Date: 20121108
  Transmission Date: 20130627
  Serious: No
  Sender: FDA-Public Use
  Company Number: US-ASTRAZENECA-2012SE78428

PATIENT
  Age: 68 Year
  Sex: Male
  Weight: 68.9 kg

DRUGS (4)
  1. PULMICORT FLEXHALER [Suspect]
     Indication: CHRONIC OBSTRUCTIVE PULMONARY DISEASE
     Dosage: 1 PUFF TWO TIMES A DAY
     Route: 055
     Dates: start: 20120905
  2. BENAZEPRIL HCTZ [Concomitant]
     Indication: HYPERTENSION
  3. ASPIRIN [Concomitant]
     Indication: HYPERTENSION
  4. MORPHINE [Concomitant]
     Indication: PAIN

REACTIONS (4)
  - Dyspnoea [Unknown]
  - Circumstance or information capable of leading to medication error [Unknown]
  - Off label use [Unknown]
  - Off label use [Unknown]
